FAERS Safety Report 12597625 (Version 1)
Quarter: 2016Q3

REPORT INFORMATION
  Report Type: Spontaneous
  Country: US (occurrence: US)
  Receive Date: 20160726
  Receipt Date: 20160726
  Transmission Date: 20161109
  Serious: Yes (Hospitalization)
  Sender: FDA-Public Use
  Company Number: US-UNITED THERAPEUTICS-UNT-2015-016061

PATIENT
  Sex: Female

DRUGS (1)
  1. REMODULIN [Suspect]
     Active Substance: TREPROSTINIL
     Indication: PULMONARY ARTERIAL HYPERTENSION
     Dosage: 0.056 ?G/KG/MIN, EVERY 48 HOURS
     Route: 041
     Dates: start: 201209, end: 20160104

REACTIONS (4)
  - Device dislocation [Not Recovered/Not Resolved]
  - Injection site discomfort [Unknown]
  - Drug dose omission [Unknown]
  - Device related infection [Unknown]

NARRATIVE: CASE EVENT DATE: 2015
